FAERS Safety Report 8377092-0 (Version None)
Quarter: 2012Q1

REPORT INFORMATION
  Report Type: 
  Country: None (occurrence: None)
  Receive Date: 20120323
  Receipt Date: 20110324
  Transmission Date: 20120608
  Serious: Yes (Disabling)
  Sender: FDA-Public Use
  Company Number: 163-21880-11032957

PATIENT
  Age: 55 Year
  Sex: Male

DRUGS (4)
  1. MARINOL [Concomitant]
  2. ZANTAC [Concomitant]
  3. GABAPENTIN [Concomitant]
  4. REVLIMID [Suspect]
     Indication: LYMPHOMA
     Dosage: 25 MG, DAILY FOR 21 DAYS, PO
     Route: 048
     Dates: start: 20110312

REACTIONS (2)
  - VOMITING [None]
  - PRURITUS [None]
